FAERS Safety Report 7494944-4 (Version None)
Quarter: 2011Q2

REPORT INFORMATION
  Report Type: 
  Country: None (occurrence: None)
  Receive Date: 20110520
  Receipt Date: 20110511
  Transmission Date: 20111010
  Serious: Yes (Hospitalization, Other)
  Sender: FDA-Public Use
  Company Number: US-AMGEN-USASP2011015130

PATIENT
  Age: 59 Year
  Sex: Female
  Weight: 68.5 kg

DRUGS (23)
  1. DULCOLAX [Concomitant]
     Dosage: UNK
  2. FOLIC ACID [Concomitant]
     Dosage: 1 MG, UNK
  3. TYLENOL (CAPLET) [Concomitant]
     Dosage: UNK
  4. BENADRYL [Concomitant]
     Dosage: UNK
  5. MELATONIN [Concomitant]
     Dosage: 1 MG, UNK
  6. ADVAIR DISKUS 100/50 [Concomitant]
     Dosage: UNK
  7. RENVELA [Concomitant]
  8. ADVAIR DISKUS 100/50 [Concomitant]
  9. MANNITOL [Concomitant]
     Dosage: UNK
  10. NORVASC [Concomitant]
     Dosage: UNK
  11. COREG [Concomitant]
     Dosage: 1 MG, UNK
  12. RENVELA [Concomitant]
     Dosage: UNK
  13. NEPHROCAPS [Concomitant]
     Dosage: UNK
  14. EPOGEN [Suspect]
     Indication: RENAL FAILURE CHRONIC
     Dosage: UNK
     Dates: start: 20030401
  15. PLETAL [Concomitant]
     Dosage: 1 MG, UNK
  16. PLAVIX [Concomitant]
     Dosage: 1 MG, UNK
  17. HECTOROL [Concomitant]
     Dosage: 1 A?G, UNK
  18. PROVENTIL                          /00139501/ [Concomitant]
     Dosage: UNK
  19. SENSIPAR [Suspect]
     Indication: PRODUCT USED FOR UNKNOWN INDICATION
     Dosage: 60 MG, QD
  20. ASPIRIN [Concomitant]
     Dosage: 1 MG, UNK
  21. ZESTRIL [Concomitant]
     Dosage: 1 MG, UNK
  22. VENOFER [Concomitant]
     Dosage: 1 MG, UNK
  23. NORVASC [Concomitant]

REACTIONS (28)
  - THERAPEUTIC RESPONSE DECREASED [None]
  - BRONCHITIS [None]
  - ANAEMIA OF CHRONIC DISEASE [None]
  - ASTHENIA [None]
  - CARDIOMEGALY [None]
  - LOSS OF CONSCIOUSNESS [None]
  - HOSPITALISATION [None]
  - APLASIA PURE RED CELL [None]
  - PROCEDURAL HYPOTENSION [None]
  - COUGH [None]
  - ARTERIOSCLEROSIS CORONARY ARTERY [None]
  - PYREXIA [None]
  - ATELECTASIS [None]
  - PRESYNCOPE [None]
  - HAEMORRHAGE [None]
  - GAIT DISTURBANCE [None]
  - HYPERCALCAEMIA [None]
  - CHEST PAIN [None]
  - NAUSEA [None]
  - IRON DEFICIENCY ANAEMIA [None]
  - STENT PLACEMENT [None]
  - CARDIOMYOPATHY [None]
  - OSTEOMYELITIS [None]
  - SEPSIS [None]
  - BACTERAEMIA [None]
  - PHOSPHORUS METABOLISM DISORDER [None]
  - CHILLS [None]
  - VOMITING [None]
